FAERS Safety Report 26171955 (Version 1)
Quarter: 2025Q4

REPORT INFORMATION
  Report Type: Spontaneous
  Country: CA (occurrence: CA)
  Receive Date: 20251217
  Receipt Date: 20251217
  Transmission Date: 20260117
  Serious: Yes (Hospitalization)
  Sender: ABBVIE
  Company Number: CA-ABBVIE-6593839

PATIENT
  Age: 27 Year
  Sex: Female

DRUGS (7)
  1. BOTULINUM TOXIN TYPE A [Suspect]
     Active Substance: BOTULINUM TOXIN TYPE A
     Indication: Pelvic pain
     Dosage: TIME INTERVAL: AS NECESSARY: 200 UNITS OF BONT-A WAS RECONSTITUTED IN NORMAL SALINE FOR A TOTAL V...
     Route: 065
  2. BOTULINUM TOXIN TYPE A [Suspect]
     Active Substance: BOTULINUM TOXIN TYPE A
     Indication: Pelvic pain
     Dosage: TIME INTERVAL: AS NECESSARY: 200 UNITS OF BONT-A WAS RECONSTITUTED IN NORMAL SALINE FOR A TOTAL V...
     Route: 065
  3. BOTULINUM TOXIN TYPE A [Suspect]
     Active Substance: BOTULINUM TOXIN TYPE A
     Indication: Pelvic pain
     Dosage: TIME INTERVAL: AS NECESSARY: 200 UNITS OF BONT-A WAS RECONSTITUTED IN NORMAL SALINE FOR A TOTAL V...
     Route: 065
  4. CEFAZOLIN [Concomitant]
     Active Substance: CEFAZOLIN
     Indication: Perirectal abscess
     Route: 065
  5. METRONIDAZOLE [Concomitant]
     Active Substance: METRONIDAZOLE
     Indication: Perirectal abscess
     Route: 065
  6. PIPERACILLIN SODIUM\TAZOBACTAM SODIUM [Concomitant]
     Active Substance: PIPERACILLIN SODIUM\TAZOBACTAM SODIUM
     Indication: Perirectal abscess
     Route: 065
  7. VANCOMYCIN [Concomitant]
     Active Substance: VANCOMYCIN
     Indication: Perirectal abscess
     Route: 065

REACTIONS (2)
  - Injection site infection [Unknown]
  - Skin necrosis [Unknown]
